FAERS Safety Report 10378386 (Version 2)
Quarter: 2014Q3

REPORT INFORMATION
  Report Type: Spontaneous
  Country: FR (occurrence: FR)
  Receive Date: 20140812
  Receipt Date: 20140929
  Transmission Date: 20150326
  Serious: Yes (Life-Threatening, Other)
  Sender: FDA-Public Use
  Company Number: FR-SA-2014SA105250

PATIENT
  Age: 87 Year
  Sex: Male

DRUGS (14)
  1. DIFFU K [Concomitant]
     Active Substance: POTASSIUM CHLORIDE
     Dates: end: 20140712
  2. ALDACTONE [Concomitant]
     Active Substance: SPIRONOLACTONE
     Route: 048
     Dates: end: 20140718
  3. PREVISCAN [Concomitant]
     Active Substance: FLUINDIONE
     Dates: end: 20140707
  4. SPIRIVA [Concomitant]
     Active Substance: TIOTROPIUM BROMIDE MONOHYDRATE
     Route: 055
     Dates: end: 20140719
  5. RIMIFON [Concomitant]
     Active Substance: ISONIAZID
     Route: 048
     Dates: start: 20140718, end: 20140719
  6. PERINDOPRIL [Concomitant]
     Active Substance: PERINDOPRIL
     Dates: end: 20140704
  7. SYMBICORT [Concomitant]
     Active Substance: BUDESONIDE\FORMOTEROL FUMARATE DIHYDRATE
     Route: 055
     Dates: end: 20140719
  8. RIFATER [Suspect]
     Active Substance: ISONIAZID\PYRAZINAMIDE\RIFAMPIN
     Indication: PULMONARY TUBERCULOSIS
     Dosage: DOSE:6 UNIT(S)
     Route: 048
     Dates: start: 20140711, end: 20140718
  9. SALBUTAMOL [Concomitant]
     Active Substance: ALBUTEROL
     Route: 055
     Dates: end: 20140715
  10. RIFADINE [Suspect]
     Active Substance: RIFAMPIN
     Indication: PULMONARY TUBERCULOSIS
     Route: 048
     Dates: start: 20140718, end: 20140719
  11. AMLODIPINE [Concomitant]
     Active Substance: AMLODIPINE BESYLATE
     Route: 048
     Dates: end: 20140718
  12. VITAMIN B6 [Concomitant]
     Active Substance: PYRIDOXINE HYDROCHLORIDE
     Route: 048
  13. LASILIX [Concomitant]
     Active Substance: FUROSEMIDE
     Dates: end: 20140708
  14. FORADIL [Concomitant]
     Active Substance: FORMOTEROL FUMARATE

REACTIONS (2)
  - Hepatitis cholestatic [Recovered/Resolved]
  - Hepatic encephalopathy [Recovered/Resolved]

NARRATIVE: CASE EVENT DATE: 20140715
